FAERS Safety Report 9439106 (Version 1)
Quarter: 2013Q3

REPORT INFORMATION
  Report Type: Report from Study
  Country: US (occurrence: US)
  Receive Date: 20130802
  Receipt Date: 20130802
  Transmission Date: 20140515
  Serious: Yes (Hospitalization, Other)
  Sender: FDA-Public Use
  Company Number: US-ABBOTT-13P-163-1116340-00

PATIENT
  Age: 20 Year
  Sex: Male

DRUGS (9)
  1. HUMIRA [Suspect]
     Indication: COLITIS ULCERATIVE
     Dates: start: 20130329, end: 201306
  2. HUMIRA [Suspect]
     Dates: start: 201306
  3. IMURAN [Concomitant]
     Indication: COLITIS ULCERATIVE
     Dosage: DAILY
  4. MVI [Concomitant]
     Indication: PRODUCT USED FOR UNKNOWN INDICATION
     Dosage: DAILY
  5. CALCIUM [Concomitant]
     Indication: PRODUCT USED FOR UNKNOWN INDICATION
     Dosage: DAILY
  6. ZINC [Concomitant]
     Indication: PRODUCT USED FOR UNKNOWN INDICATION
     Dosage: DAILY
  7. PREDNISONE [Concomitant]
     Indication: PRODUCT USED FOR UNKNOWN INDICATION
     Dates: end: 201306
  8. PREDNISONE [Concomitant]
     Dates: start: 201306
  9. PREDNISONE [Concomitant]
     Dates: start: 201306

REACTIONS (7)
  - Diarrhoea haemorrhagic [Unknown]
  - Fatigue [Not Recovered/Not Resolved]
  - Blood iron decreased [Unknown]
  - Abdominal distension [Unknown]
  - Frequent bowel movements [Not Recovered/Not Resolved]
  - Abdominal pain upper [Not Recovered/Not Resolved]
  - Colitis [Unknown]
